FAERS Safety Report 21454729 (Version 1)
Quarter: 2022Q4

REPORT INFORMATION
  Report Type: Spontaneous
  Country: DE (occurrence: DE)
  Receive Date: 20221014
  Receipt Date: 20221014
  Transmission Date: 20230113
  Serious: Yes (Death, Life-Threatening, Other)
  Sender: FDA-Public Use
  Company Number: DE-drreddys-LIT/GER/22/0155701

PATIENT
  Age: 51 Year
  Sex: Female

DRUGS (3)
  1. EVEROLIMUS [Suspect]
     Active Substance: EVEROLIMUS
     Indication: Metastases to liver
  2. CAPECITABINE [Suspect]
     Active Substance: CAPECITABINE
     Indication: Metastases to liver
  3. BEVACIZUMAB [Suspect]
     Active Substance: BEVACIZUMAB
     Indication: Metastases to liver

REACTIONS (4)
  - Hepatic failure [Fatal]
  - Breast cancer [Unknown]
  - Treatment failure [Unknown]
  - Off label use [Unknown]
